FAERS Safety Report 12529431 (Version 4)
Quarter: 2016Q3

REPORT INFORMATION
  Report Type: Spontaneous
  Country: SE (occurrence: SE)
  Receive Date: 20160706
  Receipt Date: 20160829
  Transmission Date: 20161109
  Serious: Yes (Death, Life-Threatening, Hospitalization, Disabling)
  Sender: FDA-Public Use
  Company Number: SE-ROCHE-1789238

PATIENT
  Age: 75 Year
  Sex: Female

DRUGS (5)
  1. DELTISON [Concomitant]
     Active Substance: PREDNISONE
     Route: 065
     Dates: start: 2016
  2. MABTHERA [Suspect]
     Active Substance: RITUXIMAB
     Indication: B-CELL LYMPHOMA
     Route: 042
     Dates: start: 201505, end: 201510
  3. BENDAMUSTINE [Suspect]
     Active Substance: BENDAMUSTINE
     Indication: B-CELL LYMPHOMA
     Route: 042
     Dates: start: 201505, end: 201510
  4. RADIATION TREATMENT [Concomitant]
     Active Substance: RADIATION THERAPY
     Indication: B-CELL LYMPHOMA
     Route: 065
     Dates: start: 2015, end: 201602
  5. TROMBYL [Suspect]
     Active Substance: ASPIRIN
     Indication: PRODUCT USED FOR UNKNOWN INDICATION
     Route: 065
     Dates: start: 2016

REACTIONS (10)
  - Blood albumin decreased [Unknown]
  - Speech disorder [Not Recovered/Not Resolved]
  - Aphasia [Not Recovered/Not Resolved]
  - Leukocytosis [Not Recovered/Not Resolved]
  - Confusional state [Not Recovered/Not Resolved]
  - Memory impairment [Not Recovered/Not Resolved]
  - Ileus [Unknown]
  - Progressive multifocal leukoencephalopathy [Fatal]
  - Blood potassium decreased [Unknown]
  - Hemiparesis [Not Recovered/Not Resolved]

NARRATIVE: CASE EVENT DATE: 2016
